FAERS Safety Report 16806668 (Version 2)
Quarter: 2019Q4

REPORT INFORMATION
  Report Type: Report from Study
  Country: US (occurrence: US)
  Receive Date: 20190913
  Receipt Date: 20191025
  Transmission Date: 20200122
  Serious: Yes (Other)
  Sender: FDA-Public Use
  Company Number: US-ALEXION PHARMACEUTICALS INC.-A201913779

PATIENT
  Sex: Female

DRUGS (2)
  1. ATG                                /00575401/ [Suspect]
     Active Substance: LAPINE T-LYMPHOCYTE IMMUNE GLOBULIN
     Indication: PRODUCT USED FOR UNKNOWN INDICATION
     Dosage: UNK
     Route: 065
     Dates: start: 20190916, end: 20190920
  2. SOLIRIS [Suspect]
     Active Substance: ECULIZUMAB
     Indication: PRODUCT USED FOR UNKNOWN INDICATION
     Dosage: UNK
     Route: 065
     Dates: end: 20190815

REACTIONS (11)
  - Transfusion [Unknown]
  - Haemoglobin decreased [Unknown]
  - Seizure [Unknown]
  - Condition aggravated [Unknown]
  - Intervertebral disc degeneration [Unknown]
  - Vision blurred [Unknown]
  - Drug ineffective [Unknown]
  - Fatigue [Unknown]
  - Adverse drug reaction [Unknown]
  - Pain in extremity [Unknown]
  - Feeling abnormal [Unknown]

NARRATIVE: CASE EVENT DATE: 20190916
